FAERS Safety Report 12299194 (Version 1)
Quarter: 2016Q2

REPORT INFORMATION
  Report Type: Spontaneous
  Country: US (occurrence: None)
  Receive Date: 20160422
  Receipt Date: 20160422
  Transmission Date: 20160815
  Serious: No
  Sender: FDA-Public Use
  Company Number: None

PATIENT
  Age: 57 Year
  Sex: Female

DRUGS (10)
  1. AMOX/K CLAV [Concomitant]
     Active Substance: AMOXICILLIN\CLAVULANATE POTASSIUM
  2. METFORMIN [Concomitant]
     Active Substance: METFORMIN HYDROCHLORIDE
  3. GLUCAGON. [Concomitant]
     Active Substance: GLUCAGON
  4. LANTUS [Concomitant]
     Active Substance: INSULIN GLARGINE
  5. MELOXICAM. [Concomitant]
     Active Substance: MELOXICAM
  6. TRAMADOL. [Concomitant]
     Active Substance: TRAMADOL
  7. IBRANCE [Suspect]
     Active Substance: PALBOCICLIB
     Indication: BREAST CANCER
     Dosage: 125MG QD 1-21 OF 28D CYCLE PO
     Route: 048
     Dates: start: 20160329
  8. LETROZOLE. [Concomitant]
     Active Substance: LETROZOLE
  9. SYNTHROID [Concomitant]
     Active Substance: LEVOTHYROXINE SODIUM
  10. CAPTOPRIL. [Concomitant]
     Active Substance: CAPTOPRIL

REACTIONS (4)
  - Fatigue [None]
  - Paraesthesia [None]
  - Pain of skin [None]
  - Pruritus [None]

NARRATIVE: CASE EVENT DATE: 20160411
